FAERS Safety Report 16410461 (Version 1)
Quarter: 2019Q2

REPORT INFORMATION
  Report Type: Spontaneous
  Country: ZA (occurrence: ZA)
  Receive Date: 20190610
  Receipt Date: 20190610
  Transmission Date: 20190711
  Serious: Yes (Death, Other)
  Sender: FDA-Public Use
  Company Number: IND-ZA-009507513-1906ZAF000063

PATIENT
  Sex: Male

DRUGS (1)
  1. ARCOXIA [Suspect]
     Active Substance: ETORICOXIB
     Indication: MUSCULOSKELETAL PAIN

REACTIONS (1)
  - Death [Fatal]
